FAERS Safety Report 9901435 (Version 1)
Quarter: 2014Q1

REPORT INFORMATION
  Report Type: Spontaneous
  Country: FR (occurrence: FR)
  Receive Date: 20140217
  Receipt Date: 20140217
  Transmission Date: 20141002
  Serious: Yes (Hospitalization)
  Sender: FDA-Public Use
  Company Number: FR-PFIZER INC-2014043630

PATIENT
  Age: 88 Year
  Sex: Male

DRUGS (10)
  1. PREVISCAN [Interacting]
     Indication: CORONARY ARTERY DISEASE
     Dosage: 5 MG OR 10 MG ACCORDING TO INR
     Route: 048
     Dates: end: 20131220
  2. DIFFU K [Concomitant]
  3. LASILIX [Concomitant]
  4. CARDENSIEL [Concomitant]
  5. FOLIC ACID [Concomitant]
  6. MECIR LP [Concomitant]
  7. SERESTA [Concomitant]
  8. FORLAX [Concomitant]
  9. COSOPT COLLYRE [Concomitant]
  10. CORDARONE [Suspect]
     Dosage: 200 MG AT 5/7 DAYS
     Route: 048

REACTIONS (5)
  - Drug interaction [Unknown]
  - Haemothorax [Unknown]
  - Anaemia [Unknown]
  - Rib fracture [Unknown]
  - Fall [Unknown]
